FAERS Safety Report 4922445-3 (Version None)
Quarter: 2006Q1

REPORT INFORMATION
  Report Type: 
  Country: None (occurrence: None)
  Receive Date: 20060224
  Receipt Date: 20060203
  Transmission Date: 20060701
  Serious: Yes (Hospitalization)
  Sender: FDA-Public Use
  Company Number: 2006UW01836

PATIENT
  Age: 80 Year
  Sex: Male
  Weight: 67 kg

DRUGS (1)
  1. IRESSA [Suspect]
     Indication: METASTATIC MALIGNANT MELANOMA
     Route: 048
     Dates: start: 20050818

REACTIONS (2)
  - EPIDIDYMITIS [None]
  - INGUINAL HERNIA [None]
